FAERS Safety Report 8930169 (Version 1)
Quarter: 2012Q4

REPORT INFORMATION
  Report Type: 
  Country: GB (occurrence: GB)
  Receive Date: 20121128
  Receipt Date: 20121128
  Transmission Date: 20130627
  Serious: Yes (Other)
  Sender: FDA-Public Use
  Company Number: GB-GLAXOSMITHKLINE-B0843526A

PATIENT
  Age: 44 Year
  Sex: Female

DRUGS (7)
  1. NIQUITIN [Suspect]
     Indication: PRODUCT USED FOR UNKNOWN INDICATION
     Route: 002
     Dates: start: 20121031, end: 20121031
  2. ASACOL [Concomitant]
     Indication: COLITIS ULCERATIVE
     Route: 048
  3. CETIRIZINE [Concomitant]
     Indication: RHINITIS ALLERGIC
     Route: 048
  4. CITALOPRAM [Concomitant]
     Indication: ANXIETY
     Route: 048
  5. CODEINE PHOSPHATE [Concomitant]
  6. ERYTHROMYCIN [Concomitant]
     Indication: ACNE
     Route: 048
  7. PROPANOLOL [Concomitant]
     Indication: MIGRAINE
     Route: 048

REACTIONS (11)
  - Malaise [Unknown]
  - Blood pressure [Unknown]
  - Malaise [Unknown]
  - Palpitations [Unknown]
  - Reaction to food additive [Unknown]
  - Dizziness [Recovered/Resolved]
  - Nausea [Recovered/Resolved]
  - Abdominal pain upper [Recovered/Resolved]
  - Diarrhoea [Recovered/Resolved]
  - Vomiting [Recovered/Resolved]
  - Fatigue [Recovered/Resolved]
